FAERS Safety Report 7293488-2 (Version None)
Quarter: 2011Q1

REPORT INFORMATION
  Report Type: 
  Country: None (occurrence: None)
  Receive Date: 20110215
  Receipt Date: 20110204
  Transmission Date: 20110831
  Serious: Yes (Death, Hospitalization)
  Sender: FDA-Public Use
  Company Number: US-ACTELION-A-NJ2011-44211

PATIENT

DRUGS (2)
  1. TRACLEER [Suspect]
     Indication: PULMONARY ARTERIAL HYPERTENSION
     Dosage: UNK
     Route: 048
     Dates: start: 20030423, end: 20110105
  2. CALCIUM CHANNEL BLOCKERS [Concomitant]

REACTIONS (3)
  - DEATH [None]
  - TRANSFUSION [None]
  - GASTROINTESTINAL HAEMORRHAGE [None]
